FAERS Safety Report 9337843 (Version 1)
Quarter: 2013Q2

REPORT INFORMATION
  Report Type: Other
  Country: GB (occurrence: GB)
  Receive Date: 20130607
  Receipt Date: 20130607
  Transmission Date: 20140414
  Serious: Yes (Death)
  Sender: FDA-Public Use
  Company Number: GB-OPTIMER-20130226

PATIENT
  Age: 63 Year
  Sex: Male

DRUGS (13)
  1. DIFICLIR [Suspect]
     Indication: CLOSTRIDIAL INFECTION
     Dosage: 200 MG, BID
     Route: 048
     Dates: start: 20130417, end: 20130427
  2. ACICLOVIR [Concomitant]
  3. CITALOPRAM [Concomitant]
  4. FLUCONAZOLE [Concomitant]
  5. LANSOPRAZOLE [Concomitant]
  6. MAGNESIUM GLYCEROPHOSPHATE [Concomitant]
  7. MEROPENEM [Concomitant]
  8. METRONIDAZOLE [Concomitant]
     Indication: CLOSTRIDIAL INFECTION
  9. OXYCONTIN [Concomitant]
  10. PENICILLIN V [Concomitant]
  11. PIPERACILLIN AND TAZOBACTAM [Concomitant]
  12. TEICOPLANIN [Concomitant]
  13. VANCOMYCIN [Concomitant]
     Indication: CLOSTRIDIAL INFECTION

REACTIONS (1)
  - Sepsis syndrome [Fatal]
